FAERS Safety Report 15620924 (Version 1)
Quarter: 2018Q4

REPORT INFORMATION
  Report Type: Spontaneous
  Country: FR (occurrence: FR)
  Receive Date: 20181115
  Receipt Date: 20181115
  Transmission Date: 20190205
  Serious: Yes (Hospitalization)
  Sender: FDA-Public Use
  Company Number: FR-JNJFOC-20181117344

PATIENT
  Age: 78 Year
  Sex: Female
  Weight: 74 kg

DRUGS (1)
  1. XARELTO [Suspect]
     Active Substance: RIVAROXABAN
     Indication: PULMONARY EMBOLISM
     Route: 048
     Dates: start: 20180927, end: 20181017

REACTIONS (2)
  - Haematuria [Recovered/Resolved]
  - Vascular purpura [Recovered/Resolved]

NARRATIVE: CASE EVENT DATE: 201810
